FAERS Safety Report 10453281 (Version 2)
Quarter: 2014Q3

REPORT INFORMATION
  Report Type: Spontaneous
  Country: DE (occurrence: DE)
  Receive Date: 20140915
  Receipt Date: 20140915
  Transmission Date: 20150326
  Serious: Yes (Hospitalization, Other)
  Sender: FDA-Public Use
  Company Number: DE-BRISTOL-MYERS SQUIBB COMPANY-20600938

PATIENT
  Age: 72 Year
  Sex: Female
  Weight: 74 kg

DRUGS (2)
  1. TRASTUZUMAB [Suspect]
     Active Substance: TRASTUZUMAB
     Indication: BREAST CANCER
     Dates: start: 201308, end: 201401
  2. PACLITAXEL. [Suspect]
     Active Substance: PACLITAXEL
     Indication: BREAST CANCER
     Route: 042
     Dates: start: 201308, end: 201401

REACTIONS (5)
  - Alveolitis allergic [Recovering/Resolving]
  - Pneumonia [Unknown]
  - Pulmonary hypertension [Unknown]
  - Jugular vein thrombosis [Unknown]
  - Cor pulmonale acute [Unknown]

NARRATIVE: CASE EVENT DATE: 201310
